FAERS Safety Report 9991238 (Version 2)
Quarter: 2014Q1

REPORT INFORMATION
  Report Type: Spontaneous
  Country: US (occurrence: US)
  Receive Date: 20140310
  Receipt Date: 20140328
  Transmission Date: 20141002
  Serious: No
  Sender: FDA-Public Use
  Company Number: US-009507513-1402USA013708

PATIENT
  Sex: Male

DRUGS (4)
  1. MIRALAX [Suspect]
     Indication: CONSTIPATION
     Dosage: UNK, BID
     Route: 048
  2. MIRALAX [Suspect]
     Dosage: 17 G, QOD
     Route: 048
     Dates: start: 201401
  3. AMLODIPINE [Concomitant]
     Dosage: 5.5 MG, UNK
  4. LOSARTAN POTASSIUM [Concomitant]
     Indication: PRODUCT USED FOR UNKNOWN INDICATION
     Dosage: 25 MG, UNKNOWN

REACTIONS (1)
  - Inappropriate schedule of drug administration [Unknown]
